FAERS Safety Report 7517865-7 (Version None)
Quarter: 2011Q2

REPORT INFORMATION
  Report Type: 
  Country: None (occurrence: None)
  Receive Date: 20110526
  Receipt Date: 20110526
  Transmission Date: 20111010
  Serious: No
  Sender: FDA-Public Use
  Company Number: None

PATIENT
  Age: 77 Year
  Sex: Female
  Weight: 63.5036 kg

DRUGS (1)
  1. WARFARIN SODIUM [Suspect]
     Indication: ATRIAL FIBRILLATION
     Dosage: 5MG 1 DAILY ORAL
     Route: 048
     Dates: start: 20110510

REACTIONS (2)
  - ADVERSE DRUG REACTION [None]
  - PRODUCT QUALITY ISSUE [None]
